FAERS Safety Report 4570566-X (Version None)
Quarter: 2005Q1

REPORT INFORMATION
  Report Type: 
  Country: None (occurrence: None)
  Receive Date: 20050202
  Receipt Date: 20050120
  Transmission Date: 20050727
  Serious: Yes (Death)
  Sender: FDA-Public Use
  Company Number: 2005-BP-00918RO

PATIENT
  Age: 38 Year
  Sex: Female

DRUGS (2)
  1. AZATHIOPRINE [Suspect]
     Indication: INTERSTITIAL LUNG DISEASE
  2. PREDNISONE [Concomitant]

REACTIONS (1)
  - DEATH [None]
